FAERS Safety Report 12113438 (Version 2)
Quarter: 2016Q1

REPORT INFORMATION
  Report Type: Spontaneous
  Country: SE (occurrence: SE)
  Receive Date: 20160225
  Receipt Date: 20160226
  Transmission Date: 20160526
  Serious: Yes (Hospitalization)
  Sender: FDA-Public Use
  Company Number: SE-ASTRAZENECA-2016SE17870

PATIENT
  Age: 74 Year
  Sex: Female

DRUGS (13)
  1. CANDESARTAN [Concomitant]
     Active Substance: CANDESARTAN
  2. CANODERM [Concomitant]
  3. OMEPRAZOLE. [Concomitant]
     Active Substance: OMEPRAZOLE
  4. TROMBYL [Concomitant]
     Active Substance: ASPIRIN
  5. ERGENYL [Concomitant]
     Active Substance: VALPROIC ACID
  6. ALVEDON FORTE [Concomitant]
  7. SIMVASTATIN. [Concomitant]
     Active Substance: SIMVASTATIN
  8. ELOCON [Concomitant]
     Active Substance: MOMETASONE FUROATE
  9. VAGIFEM [Concomitant]
     Active Substance: ESTRADIOL
  10. NITROLINGUAL [Concomitant]
     Active Substance: NITROGLYCERIN
  11. EKLIRA GENUAIR [Suspect]
     Active Substance: ACLIDINIUM BROMIDE
     Indication: CHRONIC OBSTRUCTIVE PULMONARY DISEASE
     Dosage: 322 MICROGRAM UNKNOWN
     Route: 055
     Dates: start: 20160128, end: 20160204
  12. METOPROLOL. [Concomitant]
     Active Substance: METOPROLOL
  13. FELODIPINE. [Concomitant]
     Active Substance: FELODIPINE

REACTIONS (5)
  - Acute kidney injury [Recovered/Resolved]
  - Rash [Recovered/Resolved]
  - Dry mouth [Unknown]
  - Infection [Unknown]
  - Urinary retention [Recovered/Resolved]

NARRATIVE: CASE EVENT DATE: 20160131
